FAERS Safety Report 17675284 (Version 2)
Quarter: 2022Q1

REPORT INFORMATION
  Report Type: Spontaneous
  Country: CH (occurrence: CH)
  Receive Date: 20200416
  Receipt Date: 20220222
  Transmission Date: 20220423
  Serious: Yes (Life-Threatening, Hospitalization)
  Sender: FDA-Public Use
  Company Number: CH-SM-2020-12332

PATIENT
  Age: 54 Year
  Sex: Male
  Weight: 90 kg

DRUGS (6)
  1. OCREVUS [Suspect]
     Active Substance: OCRELIZUMAB
     Indication: Relapsing-remitting multiple sclerosis
     Route: 041
     Dates: start: 20180522
  2. SOLU-MEDROL [Concomitant]
     Active Substance: METHYLPREDNISOLONE SODIUM SUCCINATE
     Indication: Premedication
     Route: 042
     Dates: start: 20180522, end: 20180522
  3. CLEMASTINE FUMARATE [Concomitant]
     Active Substance: CLEMASTINE FUMARATE
     Indication: Premedication
     Route: 042
     Dates: start: 20180522, end: 20180522
  4. ASPIRIN [Concomitant]
     Active Substance: ASPIRIN
     Route: 048
  5. TICAGRELOR [Concomitant]
     Active Substance: TICAGRELOR
  6. VI-DE3 [Concomitant]
     Route: 048

REACTIONS (1)
  - Myocardial infarction [Recovered/Resolved]

NARRATIVE: CASE EVENT DATE: 20180522
